FAERS Safety Report 18387020 (Version 1)
Quarter: 2020Q4

REPORT INFORMATION
  Report Type: Report from Study
  Country: None (occurrence: US)
  Receive Date: 20201015
  Receipt Date: 20201015
  Transmission Date: 20210114
  Serious: Yes (Other)
  Sender: FDA-Public Use
  Company Number: US-ABBVIE-20K-163-3429483-00

PATIENT
  Sex: Male
  Weight: 97.61 kg

DRUGS (8)
  1. ADVIL [Concomitant]
     Active Substance: IBUPROFEN
     Indication: MYALGIA
  2. HUMIRA [Suspect]
     Active Substance: ADALIMUMAB
     Route: 058
     Dates: start: 202005
  3. VICODIN [Concomitant]
     Active Substance: ACETAMINOPHEN\HYDROCODONE BITARTRATE
     Indication: PAIN
  4. MORPHINE [Concomitant]
     Active Substance: MORPHINE
     Indication: PAIN
  5. HUMIRA [Suspect]
     Active Substance: ADALIMUMAB
     Route: 058
  6. ADVIL [Concomitant]
     Active Substance: IBUPROFEN
     Indication: HEADACHE
  7. ADVIL [Concomitant]
     Active Substance: IBUPROFEN
     Indication: PAIN
  8. HUMIRA [Suspect]
     Active Substance: ADALIMUMAB
     Indication: PSORIATIC ARTHROPATHY
     Route: 058
     Dates: start: 2015, end: 2015

REACTIONS (9)
  - Road traffic accident [Recovered/Resolved]
  - Fracture nonunion [Recovered/Resolved]
  - Rib fracture [Recovered/Resolved]
  - Pain in extremity [Recovering/Resolving]
  - Clavicle fracture [Recovered/Resolved]
  - Peripheral swelling [Recovering/Resolving]
  - Tooth fracture [Recovered/Resolved]
  - Impaired healing [Unknown]
  - Arthralgia [Not Recovered/Not Resolved]

NARRATIVE: CASE EVENT DATE: 2015
